FAERS Safety Report 7434222-2 (Version None)
Quarter: 2011Q2

REPORT INFORMATION
  Report Type: 
  Country: None (occurrence: None)
  Receive Date: 20110425
  Receipt Date: 20110420
  Transmission Date: 20111010
  Serious: No
  Sender: FDA-Public Use
  Company Number: US-PFIZER INC-2011086782

PATIENT
  Sex: Female
  Weight: 68.027 kg

DRUGS (4)
  1. LEVOXYL [Concomitant]
     Indication: HYPOTHYROIDISM
     Dosage: 0.1 MG, UNK
     Route: 048
  2. CYMBALTA [Concomitant]
     Indication: PAIN
     Dosage: 40 MG, UNK
     Route: 048
  3. LYRICA [Suspect]
     Indication: NEURALGIA
  4. LYRICA [Suspect]
     Indication: MYALGIA
     Dosage: 150 MG IN THE MORNING, 300 MG AT NIGHT
     Route: 048
     Dates: start: 20071105

REACTIONS (1)
  - PRURITUS [None]
